FAERS Safety Report 7497858-9 (Version None)
Quarter: 2011Q2

REPORT INFORMATION
  Report Type: 
  Country: None (occurrence: None)
  Receive Date: 20110524
  Receipt Date: 20110415
  Transmission Date: 20111010
  Serious: Yes (Other)
  Sender: FDA-Public Use
  Company Number: US-BAYER-200839926NA

PATIENT
  Age: 43 Year
  Sex: Female
  Weight: 75.283 kg

DRUGS (15)
  1. XANAX [Concomitant]
  2. PROZAC [Concomitant]
  3. MAGNEVIST [Suspect]
     Indication: NUCLEAR MAGNETIC RESONANCE IMAGING
     Dates: start: 19960312, end: 19960312
  4. NEXIUM [Concomitant]
  5. METHADONE HCL [Concomitant]
  6. COMPAZINE [Concomitant]
  7. FOLBEE [Concomitant]
  8. MORPHINE [Concomitant]
  9. OXYCONTIN [Concomitant]
  10. DIOVAN [Concomitant]
  11. LASIX [Concomitant]
  12. VALIUM [Concomitant]
  13. GADOLINIUM IN UNSPECIFIED DRUG [Suspect]
  14. GADOLINIUM IN UNSPECIFIED DRUG [Suspect]
  15. PREDNISONE [Concomitant]

REACTIONS (24)
  - SKIN TIGHTNESS [None]
  - MUSCULOSKELETAL STIFFNESS [None]
  - PRURITUS GENERALISED [None]
  - SKIN ULCER [None]
  - SKIN LESION [None]
  - PAIN [None]
  - MUSCLE TIGHTNESS [None]
  - SKIN INDURATION [None]
  - RASH [None]
  - MOBILITY DECREASED [None]
  - DRY SKIN [None]
  - JOINT STIFFNESS [None]
  - JOINT RANGE OF MOTION DECREASED [None]
  - SKIN DISCOLOURATION [None]
  - PRURITUS [None]
  - NEPHROGENIC SYSTEMIC FIBROSIS [None]
  - GAIT DISTURBANCE [None]
  - SCAR [None]
  - ASTHENIA [None]
  - SENSORY LOSS [None]
  - IMPAIRED HEALING [None]
  - ARTHRALGIA [None]
  - SKIN FIBROSIS [None]
  - OEDEMA [None]
